FAERS Safety Report 5628045-4 (Version None)
Quarter: 2008Q1

REPORT INFORMATION
  Report Type: 
  Country: None (occurrence: None)
  Receive Date: 20080215
  Receipt Date: 20080207
  Transmission Date: 20080703
  Serious: Yes (Other)
  Sender: FDA-Public Use
  Company Number: US-ELI_LILLY_AND_COMPANY-US200709001528

PATIENT
  Age: 55 Year
  Sex: Female
  Weight: 112.47 kg

DRUGS (14)
  1. HUMALOG [Suspect]
     Indication: DIABETES MELLITUS
     Dates: start: 19970101
  2. LANTUS [Concomitant]
     Indication: DIABETES MELLITUS
  3. CHEMOTHERAPEUTICS NOS [Concomitant]
  4. EFFEXOR XR [Concomitant]
  5. NEURONTIN [Concomitant]
  6. FEMARA [Concomitant]
     Indication: BREAST CANCER
  7. MOBIC [Concomitant]
  8. PROTONIX [Concomitant]
  9. LISINOPRIL [Concomitant]
  10. SYNTHROID [Concomitant]
  11. LORATADINE [Concomitant]
  12. RISPERDAL [Concomitant]
  13. LIPITOR [Concomitant]
  14. NORCO [Concomitant]

REACTIONS (6)
  - BLOOD ALKALINE PHOSPHATASE INCREASED [None]
  - BREAST CANCER [None]
  - DIABETIC FOOT [None]
  - VISUAL ACUITY REDUCED [None]
  - VITREOUS HAEMORRHAGE [None]
  - WOUND [None]
